FAERS Safety Report 10562048 (Version 3)
Quarter: 2015Q2

REPORT INFORMATION
  Report Type: Report from Study
  Country: DE (occurrence: DE)
  Receive Date: 20141104
  Receipt Date: 20150415
  Transmission Date: 20150821
  Serious: Yes (Hospitalization, Other)
  Sender: FDA-Public Use
  Company Number: DE-BRISTOL-MYERS SQUIBB COMPANY-21548599

PATIENT
  Age: 90 Year
  Sex: Female
  Weight: 88 kg

DRUGS (1)
  1. APIXABAN [Suspect]
     Active Substance: APIXABAN
     Indication: CEREBROVASCULAR ACCIDENT PROPHYLAXIS
     Dosage: 28AUG14-03SEP14
     Route: 048
     Dates: start: 20140828

REACTIONS (2)
  - Cardiac failure [Recovered/Resolved with Sequelae]
  - Renal impairment [Unknown]

NARRATIVE: CASE EVENT DATE: 20140903
